FAERS Safety Report 14118061 (Version 1)
Quarter: 2017Q4

REPORT INFORMATION
  Report Type: Spontaneous
  Country: JP (occurrence: JP)
  Receive Date: 20171024
  Receipt Date: 20171024
  Transmission Date: 20180321
  Serious: Yes (Death)
  Sender: FDA-Public Use
  Company Number: JP-ELI_LILLY_AND_COMPANY-JP201707008373

PATIENT
  Age: 72 Year
  Sex: Female
  Weight: 36 kg

DRUGS (3)
  1. CYRAMZA [Suspect]
     Active Substance: RAMUCIRUMAB
     Indication: ADENOCARCINOMA GASTRIC
     Dosage: 240 MG, OTHER
     Route: 041
     Dates: start: 20150811, end: 20150811
  2. RESTAMIN A KOWA [Concomitant]
     Indication: ALLERGY PROPHYLAXIS
     Dosage: 50 MG, DAILY
     Route: 048
     Dates: start: 20150811, end: 20150811
  3. PRIMPERAN [Concomitant]
     Active Substance: METOCLOPRAMIDE HYDROCHLORIDE
     Indication: PROPHYLAXIS OF NAUSEA AND VOMITING
     Dosage: 15 MG, DAILY
     Route: 048
     Dates: start: 20150811, end: 20150811

REACTIONS (2)
  - Haemorrhage [Fatal]
  - Disseminated intravascular coagulation [Fatal]

NARRATIVE: CASE EVENT DATE: 20150813
